FAERS Safety Report 19918202 (Version 1)
Quarter: 2021Q4

REPORT INFORMATION
  Report Type: Spontaneous
  Country: US (occurrence: US)
  Receive Date: 20211005
  Receipt Date: 20211005
  Transmission Date: 20220303
  Serious: Yes (Death, Other)
  Sender: FDA-Public Use
  Company Number: US-GLAXOSMITHKLINE-US2021GSK207075

PATIENT
  Sex: Female

DRUGS (4)
  1. RANITIDINE HYDROCHLORIDE [Suspect]
     Active Substance: RANITIDINE HYDROCHLORIDE
     Indication: Hernia
     Dosage: UNK, QD
     Route: 065
     Dates: start: 200401, end: 201304
  2. RANITIDINE HYDROCHLORIDE [Suspect]
     Active Substance: RANITIDINE HYDROCHLORIDE
     Indication: Hernia
     Dosage: UNK, QD
     Route: 065
     Dates: start: 200401, end: 201304
  3. RANITIDINE [Suspect]
     Active Substance: RANITIDINE
     Indication: Hernia
     Dosage: UNK, QD
     Route: 065
     Dates: start: 200401, end: 201304
  4. RANITIDINE [Suspect]
     Active Substance: RANITIDINE
     Indication: Hernia
     Dosage: UNK, QD
     Route: 065
     Dates: start: 200401, end: 201304

REACTIONS (2)
  - Death [Fatal]
  - Gastric cancer [Unknown]
